FAERS Safety Report 11655888 (Version 6)
Quarter: 2016Q2

REPORT INFORMATION
  Report Type: Report from Study
  Country: US (occurrence: US)
  Receive Date: 20151023
  Receipt Date: 20160418
  Transmission Date: 20160815
  Serious: Yes (Other)
  Sender: FDA-Public Use
  Company Number: US-AMGEN-USASL2015083738

PATIENT
  Age: 70 Year
  Sex: Female

DRUGS (3)
  1. REVLIMID [Concomitant]
     Active Substance: LENALIDOMIDE
     Dosage: UNK
  2. DEXAMETHASONE. [Concomitant]
     Active Substance: DEXAMETHASONE
     Dosage: UNK
  3. KYPROLIS [Suspect]
     Active Substance: CARFILZOMIB
     Indication: PRODUCT USED FOR UNKNOWN INDICATION
     Dosage: UNK
     Route: 065
     Dates: start: 201508

REACTIONS (24)
  - Lower respiratory tract infection [Not Recovered/Not Resolved]
  - Nodule [Unknown]
  - Bone pain [Recovering/Resolving]
  - Pain [Not Recovered/Not Resolved]
  - Secretion discharge [Unknown]
  - Cough [Not Recovered/Not Resolved]
  - Sensation of foreign body [Unknown]
  - Feeling abnormal [Unknown]
  - Sputum discoloured [Unknown]
  - Muscle spasms [Recovering/Resolving]
  - Malaise [Not Recovered/Not Resolved]
  - Flank pain [Unknown]
  - General physical condition abnormal [Unknown]
  - Head discomfort [Unknown]
  - Insomnia [Unknown]
  - Mass [Unknown]
  - Gait disturbance [Unknown]
  - Somnolence [Unknown]
  - Abdominal discomfort [Not Recovered/Not Resolved]
  - Skin exfoliation [Unknown]
  - Nasopharyngitis [Not Recovered/Not Resolved]
  - Diarrhoea [Not Recovered/Not Resolved]
  - Dizziness [Unknown]
  - Decreased activity [Unknown]

NARRATIVE: CASE EVENT DATE: 2015
